FAERS Safety Report 6346292-3 (Version None)
Quarter: 2009Q3

REPORT INFORMATION
  Report Type: 
  Country: None (occurrence: None)
  Receive Date: 20090909
  Receipt Date: 20090901
  Transmission Date: 20100115
  Serious: Yes (Other)
  Sender: FDA-Public Use
  Company Number: PHHY2009BR37572

PATIENT
  Age: 41 Year
  Sex: Female

DRUGS (3)
  1. RASILEZ [Suspect]
     Indication: PROPHYLAXIS
     Dosage: 150 MG, UNK
     Dates: start: 20060101
  2. RASILEZ [Suspect]
     Dosage: 300 MG, 1 DF /QD
     Dates: start: 20070101
  3. DIOVAN AMLO FIX [Suspect]
     Indication: HYPERTENSION
     Dosage: 1 DF (320/5)/ DAY

REACTIONS (1)
  - GASTRIC OPERATION [None]
